FAERS Safety Report 5040524-X (Version None)
Quarter: 2006Q2

REPORT INFORMATION
  Report Type: 
  Country: None (occurrence: None)
  Receive Date: 20060630
  Receipt Date: 20060622
  Transmission Date: 20061013
  Serious: Yes (Hospitalization)
  Sender: FDA-Public Use
  Company Number: FR-ABBOTT-06P-056-0336699-00

PATIENT
  Age: 74 Year
  Sex: Male

DRUGS (1)
  1. DEPAKOTE [Suspect]
     Indication: DEPRESSION
     Route: 048

REACTIONS (4)
  - BRONCHITIS [None]
  - COMA [None]
  - MAJOR DEPRESSION [None]
  - SUICIDE ATTEMPT [None]
